FAERS Safety Report 6000043-0 (Version None)
Quarter: 2008Q4

REPORT INFORMATION
  Report Type: 
  Country: None (occurrence: None)
  Receive Date: 20081215
  Receipt Date: 20081210
  Transmission Date: 20090506
  Serious: Yes (Hospitalization)
  Sender: FDA-Public Use
  Company Number: A0759732A

PATIENT
  Age: 60 Year
  Sex: Male

DRUGS (2)
  1. COREG [Suspect]
     Indication: DRUG USE FOR UNKNOWN INDICATION
     Dosage: 25MG TWICE PER DAY
     Route: 048
     Dates: start: 20000101
  2. WATER PILL [Concomitant]

REACTIONS (6)
  - ANXIETY [None]
  - CARDIAC FLUTTER [None]
  - DYSPNOEA [None]
  - FLUID RETENTION [None]
  - HEART RATE INCREASED [None]
  - WEIGHT INCREASED [None]
